FAERS Safety Report 10087212 (Version 1)
Quarter: 2014Q2

REPORT INFORMATION
  Report Type: Spontaneous
  Country: GB (occurrence: GB)
  Receive Date: 20140418
  Receipt Date: 20140418
  Transmission Date: 20141212
  Serious: Yes (Other)
  Sender: FDA-Public Use
  Company Number: GB-ALLERGAN-1407739US

PATIENT
  Sex: Female

DRUGS (5)
  1. TROSPIUM CHLORIDE UNK [Suspect]
     Indication: STRESS URINARY INCONTINENCE
     Dosage: 40 MG, QD
     Dates: start: 20130214, end: 20131028
  2. PARACETAMOL [Concomitant]
     Indication: PAIN
     Dosage: UNK, PRN
     Route: 048
     Dates: start: 20070405
  3. ADCAL-D3 [Concomitant]
     Indication: OSTEOPENIA
     Dosage: 2 DF, QD
  4. ACYCLOVIR [Concomitant]
     Indication: ORAL HERPES
     Dosage: 1 G, QD
     Route: 048
     Dates: start: 20100601
  5. LACTULOSE [Concomitant]
     Indication: CONSTIPATION
     Dosage: UNK UNK, PRN
     Dates: start: 20130616

REACTIONS (2)
  - Ventricular tachycardia [Unknown]
  - Presyncope [Unknown]
